FAERS Safety Report 4969269-9 (Version None)
Quarter: 2006Q2

REPORT INFORMATION
  Report Type: 
  Country: None (occurrence: None)
  Receive Date: 20060411
  Receipt Date: 20060330
  Transmission Date: 20061013
  Serious: Yes (Life-Threatening, Hospitalization)
  Sender: FDA-Public Use
  Company Number: CN-ROCHE-442706

PATIENT
  Age: 41 Year
  Sex: Male

DRUGS (2)
  1. PEGASYS [Suspect]
     Indication: HEPATITIS B
     Dosage: - REPORTED ROUTE: IH; FORMULATION: VIAL. - DOSING REGIMEN WEEKLY.
     Route: 050
     Dates: start: 20050915, end: 20060315
  2. UNSPECIFIED DRUG [Concomitant]
     Indication: LEUKOPENIA
     Dosage: DRUG NAME REPORTED AS TRANDITIONAL CHINESE MEDICINE (SHENGBAIPIAN).
     Dates: start: 20050915, end: 20060315

REACTIONS (4)
  - ALANINE AMINOTRANSFERASE INCREASED [None]
  - ASPARTATE AMINOTRANSFERASE INCREASED [None]
  - JAUNDICE [None]
  - LEUKOPENIA [None]
